FAERS Safety Report 16821488 (Version 1)
Quarter: 2019Q3

REPORT INFORMATION
  Report Type: Spontaneous
  Country: CN (occurrence: CN)
  Receive Date: 20190918
  Receipt Date: 20190918
  Transmission Date: 20191005
  Serious: Yes (Other)
  Sender: FDA-Public Use
  Company Number: CN-PFIZER INC-2019393544

PATIENT
  Age: 32 Year
  Sex: Male
  Weight: 65 kg

DRUGS (1)
  1. CYTARABINE. [Suspect]
     Active Substance: CYTARABINE
     Indication: ACUTE LEUKAEMIA
     Dosage: 2.000 G, 2X/DAY
     Route: 041
     Dates: start: 20190812, end: 20190812

REACTIONS (3)
  - Rash [Recovering/Resolving]
  - Flushing [Recovering/Resolving]
  - Macule [Recovering/Resolving]

NARRATIVE: CASE EVENT DATE: 20190814
